FAERS Safety Report 10034927 (Version 1)
Quarter: 2014Q1

REPORT INFORMATION
  Report Type: Spontaneous
  Country: US (occurrence: US)
  Receive Date: 20140325
  Receipt Date: 20140325
  Transmission Date: 20141002
  Serious: No
  Sender: FDA-Public Use
  Company Number: US-009507513-1403USA009699

PATIENT
  Sex: 0

DRUGS (2)
  1. ISENTRESS [Suspect]
     Route: 048
  2. PROTEASE/PROTEASES (UNSPECIFIED) [Concomitant]

REACTIONS (3)
  - CD4 lymphocytes decreased [Unknown]
  - Drug ineffective [Unknown]
  - Decreased immune responsiveness [Unknown]
